FAERS Safety Report 8320730 (Version 5)
Quarter: 2013Q4

REPORT INFORMATION
  Report Type: Report from Study
  Country: CA (occurrence: CA)
  Receive Date: 20120104
  Receipt Date: 20131107
  Transmission Date: 20140711
  Serious: Yes (Hospitalization)
  Sender: FDA-Public Use
  Company Number: CA-UCBSA-045970

PATIENT
  Age: 64 Year
  Sex: Male
  Weight: 68.2 kg

DRUGS (24)
  1. CERTOLIZUMAB PEGOL [Suspect]
     Indication: RHEUMATOID ARTHRITIS
     Dosage: NO OF DOSES RECEIVED:1
     Route: 058
     Dates: start: 20111012, end: 20111130
  2. CERTOLIZUMAB PEGOL [Suspect]
     Indication: RHEUMATOID ARTHRITIS
     Dosage: NO OF DOSES RECEIVED:3
     Route: 058
     Dates: start: 20110831, end: 20110927
  3. METHOTREXATE [Concomitant]
     Indication: RHEUMATOID ARTHRITIS
     Dosage: 25MG QS
     Route: 058
     Dates: start: 20110530
  4. CELEBREX [Concomitant]
     Indication: RHEUMATOID ARTHRITIS
     Route: 048
     Dates: start: 20110715, end: 20110915
  5. CELEBREX [Concomitant]
     Indication: RHEUMATOID ARTHRITIS
     Route: 048
     Dates: start: 20111201
  6. CELEBREX [Concomitant]
     Indication: RHEUMATOID ARTHRITIS
     Dosage: 200 MG QD,PRN
     Route: 048
     Dates: start: 20111002, end: 20111111
  7. CELEBREX [Concomitant]
     Indication: RHEUMATOID ARTHRITIS
     Route: 048
     Dates: start: 20111112, end: 201111
  8. ATACAND [Concomitant]
     Indication: HYPERTENSION
     Dosage: 32/25; DOSE PER INTAKE: 1 TAB
     Route: 048
     Dates: start: 201102
  9. CRESTOR [Concomitant]
     Indication: HYPERLIPIDAEMIA
     Route: 048
     Dates: start: 2007
  10. SYNTHROID [Concomitant]
     Indication: HYPOTHYROIDISM
     Route: 048
     Dates: start: 2008, end: 20111119
  11. ASAPHEN [Concomitant]
     Indication: PROPHYLAXIS
     Route: 048
     Dates: start: 2000
  12. FOLIC ACID [Concomitant]
     Indication: ADVERSE DRUG REACTION
     Dosage: 5MG WEEKLY
     Route: 048
     Dates: start: 20100118
  13. LINSEED OIL [Concomitant]
     Indication: NUTRITIONAL SUPPLEMENTATION
     Route: 048
     Dates: start: 2006
  14. GARLIC [Concomitant]
     Indication: NUTRITIONAL SUPPLEMENTATION
     Dosage: DOSE PER INTAKE: 3 TAB
     Route: 048
     Dates: start: 2005
  15. VITAMIN E [Concomitant]
     Indication: NUTRITIONAL SUPPLEMENTATION
     Route: 048
     Dates: start: 2000
  16. CENTRUM FORTE [Concomitant]
     Indication: NUTRITIONAL SUPPLEMENTATION
     Dosage: DOSE PER INTAKE: 1 TAB
     Route: 048
     Dates: start: 2004
  17. GLUCOSAMINE [Concomitant]
     Indication: NUTRITIONAL SUPPLEMENTATION
     Route: 048
     Dates: start: 2004
  18. VITAMIN C [Concomitant]
     Indication: NUTRITIONAL SUPPLEMENTATION
     Route: 048
     Dates: start: 20110117
  19. METAMUCIL [Concomitant]
     Indication: CONSTIPATION
     Dosage: DOSE PER INTAKE:2 TAB
     Route: 048
     Dates: start: 2008
  20. EMTEC-30 [Concomitant]
     Indication: ARTHRALGIA
     Dosage: DOS EPER INTAKE:1 TAB
     Route: 048
     Dates: start: 20110815, end: 20110915
  21. EMTEC-30 [Concomitant]
     Indication: ARTHRALGIA
     Dosage: 1 TAB QD,PRN
     Route: 048
     Dates: start: 20111002, end: 20111007
  22. TYLENOL [Concomitant]
     Indication: ARTHRALGIA
     Dosage: 650 MG QD,PRN
     Dates: start: 20111002
  23. RALIVIA [Concomitant]
     Indication: ARTHRALGIA
     Dosage: 200 MG QD,PRN
     Dates: start: 20111014
  24. TWIN RIX [Concomitant]
     Indication: IMMUNISATION
     Dosage: 1 ML ONCE
     Dates: start: 20111004, end: 20111004

REACTIONS (1)
  - Pneumonia [Recovered/Resolved]
